FAERS Safety Report 23591339 (Version 2)
Quarter: 2024Q1

REPORT INFORMATION
  Report Type: Spontaneous
  Country: CN (occurrence: CN)
  Receive Date: 20240304
  Receipt Date: 20240306
  Transmission Date: 20240410
  Serious: Yes (Life-Threatening, Hospitalization, Other)
  Sender: FDA-Public Use
  Company Number: CN-PFIZER INC-PV202400029147

PATIENT
  Age: 75 Year
  Sex: Female

DRUGS (21)
  1. PIPERACILLIN SODIUM\TAZOBACTAM SODIUM [Suspect]
     Active Substance: PIPERACILLIN SODIUM\TAZOBACTAM SODIUM
     Indication: Pneumonia
     Dosage: 4.5 G, 2X/DAY (EVERY 12 H)
     Route: 042
     Dates: start: 2023, end: 2023
  2. IRBESARTAN [Concomitant]
     Active Substance: IRBESARTAN
     Indication: Hypertension
     Dosage: UNK
     Dates: start: 2023
  3. METHYLPREDNISOLONE SODIUM SUCCINATE [Concomitant]
     Active Substance: METHYLPREDNISOLONE SODIUM SUCCINATE
     Indication: Antiinflammatory therapy
     Dosage: 20 MG, 2X/DAY (EVERY 12 HRS)
     Route: 042
     Dates: start: 2023
  4. METHYLPREDNISOLONE SODIUM SUCCINATE [Concomitant]
     Active Substance: METHYLPREDNISOLONE SODIUM SUCCINATE
     Dosage: 40 UNK
  5. METHYLPREDNISOLONE SODIUM SUCCINATE [Concomitant]
     Active Substance: METHYLPREDNISOLONE SODIUM SUCCINATE
     Dosage: 20 MG, 1X/DAY (QD)
     Route: 042
     Dates: start: 2023
  6. IBUPROFEN [Concomitant]
     Active Substance: IBUPROFEN
     Indication: Antipyresis
     Dosage: 0.1 G, PRN (AS NEEDED)
     Route: 048
     Dates: start: 2023
  7. IBUPROFEN [Concomitant]
     Active Substance: IBUPROFEN
     Indication: Antiinflammatory therapy
     Dosage: 0.1 G, PRN (AS NEEDED)
     Route: 048
     Dates: start: 2023
  8. GLUTATHIONE [Concomitant]
     Active Substance: GLUTATHIONE
     Indication: Hepatic function abnormal
     Dosage: 0.4 MG, DAILY
     Route: 048
  9. POTASSIUM CHLORIDE [Concomitant]
     Active Substance: POTASSIUM CHLORIDE
     Indication: Mineral supplementation
     Dosage: PUMP (30 MG ST IVVP)
     Dates: start: 2023
  10. POTASSIUM CITRATE [Concomitant]
     Active Substance: POTASSIUM CITRATE
     Indication: Mineral supplementation
     Dosage: 2 G, 3X/DAY
     Route: 048
     Dates: start: 2023
  11. VALSARTAN [Concomitant]
     Active Substance: VALSARTAN
     Indication: Blood pressure management
     Dosage: 80 MG, 1X/DAY (QD)
     Route: 048
     Dates: start: 2023
  12. NIFEDIPINE [Concomitant]
     Active Substance: NIFEDIPINE
     Indication: Blood pressure management
     Dosage: 30 MG, 1X/DAY (QD)
     Route: 048
     Dates: start: 2023
  13. ENOXAPARIN SODIUM [Concomitant]
     Active Substance: ENOXAPARIN SODIUM
     Indication: Anticoagulant therapy
     Dosage: 5000 IU, 1X/DAY (QD)
     Dates: start: 2023
  14. OXYGEN [Concomitant]
     Active Substance: OXYGEN
     Dosage: LOW-FLOW
     Dates: start: 2023
  15. DEXAMETHASONE SODIUM PHOSPHATE [Concomitant]
     Active Substance: DEXAMETHASONE PHOSPHATE\DEXAMETHASONE SODIUM PHOSPHATE
     Dosage: 5 MG ST IV
     Route: 042
     Dates: start: 2023
  16. LANSOPRAZOLE [Concomitant]
     Active Substance: LANSOPRAZOLE
     Dosage: 30 MG ST IV
     Route: 042
     Dates: start: 2023
  17. CILASTATIN SODIUM\IMIPENEM [Concomitant]
     Active Substance: CILASTATIN SODIUM\IMIPENEM
     Indication: Pneumonia
     Dosage: 0.5 G, 3X/DAY (EVERY 8 H)
     Dates: start: 2023
  18. METHOTREXATE [Concomitant]
     Active Substance: METHOTREXATE
     Indication: Immunosuppression
     Dosage: 10 MG, WEEKLY (QW)
     Route: 048
     Dates: start: 2023
  19. FOLIC ACID [Concomitant]
     Active Substance: FOLIC ACID
     Indication: Immunosuppression
     Dosage: 10 MG, WEEKLY (QW)
     Route: 048
     Dates: start: 2023
  20. CALCIUM CARBONATE\CHOLECALCIFEROL [Concomitant]
     Active Substance: CALCIUM CARBONATE\CHOLECALCIFEROL
     Indication: Osteoporosis prophylaxis
     Dosage: 0.6 G, 1X/DAY (QD)
     Route: 048
     Dates: start: 2023
  21. METOPROLOL TARTRATE [Concomitant]
     Active Substance: METOPROLOL TARTRATE
     Indication: Arrhythmia prophylaxis
     Dosage: 12.5 MG, 1X/DAY (QD)
     Route: 048
     Dates: start: 2023

REACTIONS (13)
  - Drug hypersensitivity [Recovered/Resolved]
  - Myocardial injury [Recovered/Resolved]
  - Cardiac failure [Recovered/Resolved]
  - Myocarditis [Recovered/Resolved]
  - Pericarditis [Recovered/Resolved]
  - Encephalopathy [Unknown]
  - Hepatic function abnormal [Recovered/Resolved]
  - Flushing [Recovered/Resolved]
  - Chills [Recovered/Resolved]
  - Tachypnoea [Recovered/Resolved]
  - Tachycardia [Recovered/Resolved]
  - Blood pressure decreased [Recovered/Resolved]
  - Pyrexia [Recovered/Resolved]

NARRATIVE: CASE EVENT DATE: 20230101
